FAERS Safety Report 4682612-3 (Version None)
Quarter: 2005Q2

REPORT INFORMATION
  Report Type: 
  Country: None (occurrence: None)
  Receive Date: 20050606
  Receipt Date: 20031014
  Transmission Date: 20051028
  Serious: Yes (Hospitalization, Disabling, Other)
  Sender: FDA-Public Use
  Company Number: JP-BRISTOL-MYERS SQUIBB COMPANY-12415378

PATIENT
  Age: 32 Year
  Sex: Male

DRUGS (22)
  1. STOCRIN CAPS [Suspect]
     Indication: HIV INFECTION
     Route: 048
     Dates: start: 19990823, end: 20030331
  2. ZERIT [Suspect]
     Indication: HIV INFECTION
     Dosage: INITIATED AT 60 MG, INCREASED TO 80 MG ON 03-FEB-2000
     Route: 048
     Dates: start: 19990823, end: 20030331
  3. EPIVIR [Suspect]
     Indication: HIV INFECTION
     Route: 048
     Dates: start: 19990823, end: 20030331
  4. INDINAVIR SULFATE [Suspect]
     Dates: start: 20001216, end: 20010314
  5. THIAMAZOLE [Suspect]
     Indication: HYPERTHYROIDISM
  6. PROPRANOLOL HYDROCHLORIDE [Suspect]
     Indication: HYPERTHYROIDISM
  7. PYRIDOXAL PHOSPHATE [Suspect]
     Indication: LYMPHADENOPATHY
     Route: 048
     Dates: end: 20001103
  8. KLARICID [Concomitant]
     Indication: MYCOBACTERIAL INFECTION
     Route: 048
     Dates: start: 19990715, end: 20020612
  9. COLD REMEDY [Concomitant]
     Dates: start: 20020519, end: 20020523
  10. SULFAMETHOXAZOLE + TRIMETHOPRIM [Concomitant]
     Dates: start: 19990701, end: 20020612
  11. MUCODYNE [Concomitant]
     Dates: start: 20020618, end: 20020618
  12. CEFCAPENE PIVOXIL HCL [Concomitant]
     Dates: start: 20020613, end: 20020618
  13. ZYRTEC [Concomitant]
     Dates: start: 20030306, end: 20030331
  14. ETHAMBUTOL HCL [Concomitant]
     Dates: start: 20000301
  15. ALLEGRA [Concomitant]
     Dates: start: 20030206, end: 20030305
  16. DENOSINE [Concomitant]
     Indication: CYTOMEGALOVIRUS OESOPHAGITIS
     Dates: start: 19991021, end: 20000908
  17. ISONIAZID [Concomitant]
     Dates: start: 20000301
  18. OLOPATADINE HCL [Concomitant]
     Dates: start: 20030109, end: 20030205
  19. PYRAZINAMIDE [Concomitant]
     Dates: start: 20000301
  20. RIFABUTIN [Concomitant]
     Dates: start: 20000301
  21. NORVIR [Concomitant]
     Dates: start: 20001216, end: 20010314
  22. TEPRENONE [Concomitant]
     Dates: end: 20001205

REACTIONS (14)
  - ATYPICAL MYCOBACTERIAL LYMPHADENITIS [None]
  - BASEDOW'S DISEASE [None]
  - BLOOD ALKALINE PHOSPHATASE INCREASED [None]
  - CYTOMEGALOVIRUS GASTRITIS [None]
  - CYTOMEGALOVIRUS OESOPHAGITIS [None]
  - HYPERTHYROIDISM [None]
  - HYPERURICAEMIA [None]
  - IMMUNE RECONSTITUTION SYNDROME [None]
  - LUNG NEOPLASM [None]
  - LYMPH NODE TUBERCULOSIS [None]
  - LYMPHADENOPATHY [None]
  - OESOPHAGEAL ULCER [None]
  - PNEUMONIA CYTOMEGALOVIRAL [None]
  - RASH [None]
